FAERS Safety Report 19548928 (Version 1)
Quarter: 2021Q3

REPORT INFORMATION
  Report Type: Spontaneous
  Country: US (occurrence: US)
  Receive Date: 20210715
  Receipt Date: 20210715
  Transmission Date: 20211014
  Serious: No
  Sender: FDA-Public Use
  Company Number: None

PATIENT
  Age: 78 Year
  Sex: Male
  Weight: 99.34 kg

DRUGS (1)
  1. EDOXABAN (EDOXABAN 60MG TAB) [Suspect]
     Active Substance: EDOXABAN
     Indication: DEEP VEIN THROMBOSIS
     Dates: start: 20200930, end: 20210213

REACTIONS (1)
  - Anaemia [None]

NARRATIVE: CASE EVENT DATE: 20210213
